FAERS Safety Report 13948215 (Version 2)
Quarter: 2017Q3

REPORT INFORMATION
  Report Type: Spontaneous
  Country: US (occurrence: US)
  Receive Date: 20170908
  Receipt Date: 20170915
  Transmission Date: 20171128
  Serious: Yes (Other)
  Sender: FDA-Public Use
  Company Number: US-AMGEN-USASP2017135214

PATIENT
  Age: 68 Year
  Sex: Male

DRUGS (1)
  1. ENBREL [Suspect]
     Active Substance: ETANERCEPT
     Indication: RHEUMATOID ARTHRITIS
     Dosage: 50 MG, QWK
     Route: 065
     Dates: start: 2013

REACTIONS (6)
  - Femur fracture [Unknown]
  - Thrombosis [Unknown]
  - Pain [Unknown]
  - Injection site pain [Unknown]
  - Road traffic accident [Unknown]
  - Product storage error [Unknown]

NARRATIVE: CASE EVENT DATE: 2015
